FAERS Safety Report 23514857 (Version 1)
Quarter: 2024Q1

REPORT INFORMATION
  Report Type: Spontaneous
  Country: US (occurrence: US)
  Receive Date: 20240212
  Receipt Date: 20240212
  Transmission Date: 20240410
  Serious: Yes (Hospitalization)
  Sender: FDA-Public Use
  Company Number: US-PRINSTON PHARMACEUTICAL INC.-2024PRN00057

PATIENT

DRUGS (6)
  1. HYDROCHLOROTHIAZIDE [Suspect]
     Active Substance: HYDROCHLOROTHIAZIDE
  2. FUROSEMIDE [Suspect]
     Active Substance: FUROSEMIDE
  3. METOPROLOL [Suspect]
     Active Substance: METOPROLOL
  4. ALPRAZOLAM [Suspect]
     Active Substance: ALPRAZOLAM
  5. ATORVASTATIN [Suspect]
     Active Substance: ATORVASTATIN
  6. COVID-19 VACCINE NOS [Suspect]
     Active Substance: COVID-19 VACCINE NOS
     Dosage: UNK

REACTIONS (6)
  - Pericardial effusion [Unknown]
  - Dyspnoea [Unknown]
  - Pain [Unknown]
  - Head injury [Unknown]
  - Fall [Unknown]
  - Headache [Unknown]

NARRATIVE: CASE EVENT DATE: 20230901
